FAERS Safety Report 25708803 (Version 1)
Quarter: 2025Q3

REPORT INFORMATION
  Report Type: Spontaneous
  Country: CN (occurrence: CN)
  Receive Date: 20250821
  Receipt Date: 20250821
  Transmission Date: 20251020
  Serious: Yes (Hospitalization, Other)
  Sender: BAXTER
  Company Number: None

PATIENT
  Age: 55 Year
  Sex: Male
  Weight: 75 kg

DRUGS (8)
  1. CYCLOPHOSPHAMIDE [Suspect]
     Active Substance: CYCLOPHOSPHAMIDE
     Indication: Ewing^s sarcoma
     Dosage: 2.2 G, QD+ 0.9% NACL 500 ML
     Route: 041
     Dates: start: 20250731, end: 20250731
  2. SODIUM CHLORIDE [Suspect]
     Active Substance: SODIUM CHLORIDE
     Dosage: 500 ML, QD +CYCLOPHOSPHAMIDE 2.2G
     Route: 041
     Dates: start: 20250731, end: 20250731
  3. SODIUM CHLORIDE [Suspect]
     Active Substance: SODIUM CHLORIDE
     Dosage: 100 ML, QD + EPIRUBICIN 90MG
     Route: 041
     Dates: start: 20250731, end: 20250731
  4. SODIUM CHLORIDE [Suspect]
     Active Substance: SODIUM CHLORIDE
     Dosage: 60 ML, QD + VINDESINE 5.7MG
     Route: 041
     Dates: start: 20250731, end: 20250731
  5. SODIUM CHLORIDE [Suspect]
     Active Substance: SODIUM CHLORIDE
     Dosage: 60 ML, QD + VINDESINE 5.7MG
     Route: 041
     Dates: start: 20250807, end: 20250807
  6. EPIRUBICIN HYDROCHLORIDE [Suspect]
     Active Substance: EPIRUBICIN HYDROCHLORIDE
     Indication: Ewing^s sarcoma
     Dosage: 90 MG, QD+ 0.9% NACL 100ML
     Route: 041
     Dates: start: 20250731, end: 20250731
  7. VINDESINE SULFATE [Suspect]
     Active Substance: VINDESINE SULFATE
     Indication: Ewing^s sarcoma
     Dosage: 5.7 MG, QD+ 0.9% NACL 60ML
     Route: 041
     Dates: start: 20250731, end: 20250731
  8. VINDESINE SULFATE [Suspect]
     Active Substance: VINDESINE SULFATE
     Dosage: 5.7 MG, QD+ 0.9% NACL 60ML
     Route: 041
     Dates: start: 20250807, end: 20250807

REACTIONS (1)
  - Myelosuppression [Recovering/Resolving]

NARRATIVE: CASE EVENT DATE: 20250813
